FAERS Safety Report 20802672 (Version 1)
Quarter: 2022Q2

REPORT INFORMATION
  Report Type: Spontaneous
  Country: US (occurrence: None)
  Receive Date: 20220509
  Receipt Date: 20220509
  Transmission Date: 20220721
  Serious: Yes (Life-Threatening)
  Sender: FDA-Public Use
  Company Number: None

PATIENT
  Age: 82 Year
  Sex: Male
  Weight: 69 kg

DRUGS (1)
  1. ALLOPURINOL [Suspect]
     Active Substance: ALLOPURINOL
     Dosage: FREQUENCY : DAILY;?
     Route: 048
     Dates: start: 20210716, end: 20210901

REACTIONS (8)
  - Rash [None]
  - Swollen tongue [None]
  - Lip swelling [None]
  - Drug reaction with eosinophilia and systemic symptoms [None]
  - Drug eruption [None]
  - Angioedema [None]
  - Urticaria [None]
  - Pruritus [None]

NARRATIVE: CASE EVENT DATE: 20210901
